FAERS Safety Report 14466255 (Version 2)
Quarter: 2018Q3

REPORT INFORMATION
  Report Type: Report from Study
  Country: None (occurrence: CA)
  Receive Date: 20180131
  Receipt Date: 20180719
  Transmission Date: 20181010
  Serious: Yes (Hospitalization, Other)
  Sender: FDA-Public Use
  Company Number: CA-ABBVIE-17K-028-2147606-00

PATIENT
  Age: 45 Year
  Sex: Female

DRUGS (1)
  1. HUMIRA [Suspect]
     Active Substance: ADALIMUMAB
     Indication: CROHN^S DISEASE
     Route: 058
     Dates: start: 20170424, end: 20170925

REACTIONS (3)
  - Ovarian oedema [Not Recovered/Not Resolved]
  - Large intestine perforation [Unknown]
  - Ovarian abscess [Recovered/Resolved]

NARRATIVE: CASE EVENT DATE: 201709
